FAERS Safety Report 12902021 (Version 1)
Quarter: 2016Q4

REPORT INFORMATION
  Report Type: Spontaneous
  Country: GT (occurrence: GT)
  Receive Date: 20161102
  Receipt Date: 20161102
  Transmission Date: 20170207
  Serious: Yes (Hospitalization, Other)
  Sender: FDA-Public Use
  Company Number: PHHY2016GT143479

PATIENT
  Sex: Female
  Weight: 77 kg

DRUGS (2)
  1. LETROZOLE. [Concomitant]
     Active Substance: LETROZOLE
     Indication: PRODUCT USED FOR UNKNOWN INDICATION
     Route: 065
  2. AFINITOR [Suspect]
     Active Substance: EVEROLIMUS
     Indication: BREAST CANCER METASTATIC
     Dosage: UNK UNK, QD
     Route: 048
     Dates: start: 201605, end: 201608

REACTIONS (16)
  - Tendon disorder [Recovering/Resolving]
  - Pulmonary oedema [Unknown]
  - Fatigue [Recovering/Resolving]
  - Monoplegia [Recovering/Resolving]
  - Gastric disorder [Recovering/Resolving]
  - Decreased appetite [Unknown]
  - Pain in extremity [Unknown]
  - Movement disorder [Unknown]
  - Swelling [Unknown]
  - Muscle spasms [Recovering/Resolving]
  - Flatulence [Recovering/Resolving]
  - Weight decreased [Unknown]
  - Blood pressure increased [Unknown]
  - Abdominal pain upper [Recovering/Resolving]
  - Bone pain [Unknown]
  - Insomnia [Recovering/Resolving]
